FAERS Safety Report 10874594 (Version 2)
Quarter: 2015Q1

REPORT INFORMATION
  Report Type: Report from Study
  Country: FR (occurrence: None)
  Receive Date: 20150224
  Receipt Date: 20150312
  Transmission Date: 20150721
  Serious: Yes (Life-Threatening, Hospitalization, Other)
  Sender: FDA-Public Use
  Company Number: 2015-10718

PATIENT
  Age: 83 Year
  Sex: Female

DRUGS (4)
  1. OXYBUPROCAINE (OXYBUPROCAINE) [Concomitant]
  2. AZITHROMYCIN [Concomitant]
     Active Substance: AZITHROMYCIN ANHYDROUS
  3. TAHOR [Concomitant]
     Active Substance: ATORVASTATIN CALCIUM
  4. EYLEA [Suspect]
     Active Substance: AFLIBERCEPT
     Indication: AGE-RELATED MACULAR DEGENERATION
     Dosage: ONCE ON LEFT EYE
     Dates: start: 20140715

REACTIONS (5)
  - Off label use [None]
  - Toxic skin eruption [None]
  - Intentional product misuse [None]
  - Myocardial infarction [None]
  - Acute coronary syndrome [None]

NARRATIVE: CASE EVENT DATE: 20150107
